FAERS Safety Report 6468845-4 (Version None)
Quarter: 2009Q4

REPORT INFORMATION
  Report Type: 
  Country: None (occurrence: None)
  Receive Date: 20091203
  Receipt Date: 20080423
  Transmission Date: 20100525
  Serious: Yes (Hospitalization)
  Sender: FDA-Public Use
  Company Number: US-ELI_LILLY_AND_COMPANY-US200605002662

PATIENT
  Sex: Female
  Weight: 108.84 kg

DRUGS (16)
  1. BYETTA [Suspect]
     Indication: TYPE 2 DIABETES MELLITUS
     Dosage: UNK, UNK
     Route: 058
     Dates: start: 20051001
  2. BYETTA [Suspect]
     Dosage: 10 UG, 2/D
     Route: 058
  3. BYETTA [Suspect]
     Dosage: 90 UG, DAILY (1/D)
     Route: 058
     Dates: start: 20060501, end: 20060501
  4. BYETTA [Suspect]
     Dosage: 10 UG, DAILY (1/D)
  5. LASIX [Concomitant]
     Dosage: 40 MG, DAILY (1/D)
  6. AVAPRO [Concomitant]
     Dosage: 300 D/F, UNK
  7. ACTOS [Concomitant]
     Dosage: 25 MG, DAILY (1/D)
  8. METFORMIN HCL [Concomitant]
     Dosage: 1000 MG, 2/D
  9. GLIMEPIRIDE [Concomitant]
     Dosage: 4 MG, DAILY (1/D)
  10. LEXAPRO [Concomitant]
     Dosage: 20 MG, DAILY (1/D)
  11. XANAX                                   /USA/ [Concomitant]
     Dosage: 0.5 MG, DAILY (1/D)
  12. LIPITOR [Concomitant]
     Dosage: 20 MG, DAILY (1/D)
  13. TRICOR [Concomitant]
     Dosage: 145 MG, DAILY (1/D)
  14. PROTONIX [Concomitant]
     Dosage: 40 MG, 2/D
  15. LANTUS [Concomitant]
     Dosage: 30 U, DAILY (1/D)
  16. ADVAIR DISKUS 100/50 [Concomitant]
     Dosage: 1 D/F, 2/D
     Route: 055

REACTIONS (10)
  - ASTHENIA [None]
  - BIPOLAR DISORDER [None]
  - CONDITION AGGRAVATED [None]
  - DIZZINESS [None]
  - INJECTION SITE HAEMATOMA [None]
  - LACERATION [None]
  - NAUSEA [None]
  - OVERDOSE [None]
  - SUICIDE ATTEMPT [None]
  - VOMITING [None]
